FAERS Safety Report 5876767-2 (Version None)
Quarter: 2008Q3

REPORT INFORMATION
  Report Type: 
  Country: None (occurrence: None)
  Receive Date: 20080909
  Receipt Date: 20080909
  Transmission Date: 20090109
  Serious: Yes (Other)
  Sender: FDA-Public Use
  Company Number: None

PATIENT
  Sex: Male
  Weight: 86.1834 kg

DRUGS (1)
  1. LIPITOR [Suspect]
     Dosage: 20 MG 1

REACTIONS (10)
  - ARTHROPATHY [None]
  - BACK PAIN [None]
  - BALANCE DISORDER [None]
  - FALL [None]
  - GRIP STRENGTH DECREASED [None]
  - IMPAIRED SELF-CARE [None]
  - MUSCLE DISORDER [None]
  - MUSCLE STRAIN [None]
  - MYALGIA [None]
  - TRIGGER FINGER [None]
